FAERS Safety Report 7686692-2 (Version None)
Quarter: 2011Q3

REPORT INFORMATION
  Report Type: 
  Country: None (occurrence: None)
  Receive Date: 20110816
  Receipt Date: 20110518
  Transmission Date: 20111222
  Serious: Yes (Other)
  Sender: FDA-Public Use
  Company Number: PHHY2011DK42220

PATIENT
  Sex: Female
  Weight: 73 kg

DRUGS (1)
  1. FEMARA [Suspect]
     Indication: HORMONE SUPPRESSION THERAPY
     Dosage: 2.5 MG
     Route: 048
     Dates: start: 20100621

REACTIONS (1)
  - VITREOUS DETACHMENT [None]
